FAERS Safety Report 13114373 (Version 1)
Quarter: 2017Q1

REPORT INFORMATION
  Report Type: Spontaneous
  Country: US (occurrence: US)
  Receive Date: 20170113
  Receipt Date: 20170113
  Transmission Date: 20170428
  Serious: Yes (Death, Hospitalization, Other)
  Sender: FDA-Public Use
  Company Number: US-APOTEX-2017AP005692

PATIENT
  Age: 15 Year
  Sex: Female

DRUGS (4)
  1. BENZONATATE CAPSULES USP [Suspect]
     Active Substance: BENZONATATE
     Indication: PRODUCT USED FOR UNKNOWN INDICATION
     Dosage: INGST + UNK
     Route: 050
  2. BENZONATATE CAPSULES USP [Suspect]
     Active Substance: BENZONATATE
     Dosage: UNK
     Route: 065
  3. TRIMETHOBENZAMIDE [Suspect]
     Active Substance: TRIMETHOBENZAMIDE
     Dosage: UNK
     Route: 065
  4. TRIMETHOBENZAMIDE [Suspect]
     Active Substance: TRIMETHOBENZAMIDE
     Indication: PRODUCT USED FOR UNKNOWN INDICATION
     Dosage: INGST + UNK
     Route: 050

REACTIONS (2)
  - Drug abuse [Fatal]
  - Cardio-respiratory arrest [Fatal]
